FAERS Safety Report 19007118 (Version 1)
Quarter: 2021Q1

REPORT INFORMATION
  Report Type: Spontaneous
  Country: US (occurrence: US)
  Receive Date: 20210312
  Receipt Date: 20210312
  Transmission Date: 20210420
  Serious: Yes (Death)
  Sender: FDA-Public Use
  Company Number: None

PATIENT
  Age: 92 Year
  Sex: Female

DRUGS (1)
  1. PROLIA [Suspect]
     Active Substance: DENOSUMAB
     Indication: OSTEOPOROSIS
     Dosage: ?          QUANTITY:1 ML MILLILITRE(S);OTHER FREQUENCY:EVERY6 MONTHS;OTHER ROUTE:INJECTION?
     Dates: start: 202002, end: 20200918

REACTIONS (1)
  - Death [None]

NARRATIVE: CASE EVENT DATE: 20210124
